FAERS Safety Report 8320222 (Version 3)
Quarter: 2012Q4

REPORT INFORMATION
  Report Type: 
  Country: US (occurrence: US)
  Receive Date: 20120103
  Receipt Date: 20121012
  Transmission Date: 20130627
  Serious: Yes (Other)
  Sender: FDA-Public Use
  Company Number: US-ASTRAZENECA-2011SE78080

PATIENT
  Age: 48 Year
  Sex: Female

DRUGS (6)
  1. SEROQUEL [Suspect]
     Indication: DEPRESSION
     Route: 048
  2. SEROQUEL [Suspect]
     Indication: NERVOUSNESS
     Route: 048
  3. SEROQUEL [Suspect]
     Indication: SLEEP DISORDER
     Route: 048
  4. SEROQUEL [Suspect]
     Indication: DEPRESSION
     Dosage: TAKING ONE 400 MG TABLET AND CUTTING AN ADDITIONAL 400 MG IN HALF AND TAKING IT
     Route: 048
  5. SEROQUEL [Suspect]
     Indication: NERVOUSNESS
     Dosage: TAKING ONE 400 MG TABLET AND CUTTING AN ADDITIONAL 400 MG IN HALF AND TAKING IT
     Route: 048
  6. SEROQUEL [Suspect]
     Indication: SLEEP DISORDER
     Dosage: TAKING ONE 400 MG TABLET AND CUTTING AN ADDITIONAL 400 MG IN HALF AND TAKING IT
     Route: 048

REACTIONS (11)
  - Neoplasm malignant [Unknown]
  - Feeling abnormal [Unknown]
  - Crying [Unknown]
  - Depression [Unknown]
  - Insomnia [Unknown]
  - Feeling of despair [Unknown]
  - Visual impairment [Unknown]
  - Off label use [Unknown]
  - Intentional drug misuse [Unknown]
  - Intentional drug misuse [Unknown]
  - Drug dose omission [Unknown]
